FAERS Safety Report 8212359-8 (Version None)
Quarter: 2012Q1

REPORT INFORMATION
  Report Type: 
  Country: None (occurrence: None)
  Receive Date: 20120315
  Receipt Date: 20120305
  Transmission Date: 20120608
  Serious: Yes (Death, Life-Threatening, Hospitalization, Disabling)
  Sender: FDA-Public Use
  Company Number: DE-JNJFOC-20090107048

PATIENT
  Age: 76 Year
  Sex: Female

DRUGS (14)
  1. METHOTREXATE [Concomitant]
     Indication: RHEUMATOID ARTHRITIS
     Dates: start: 20060101, end: 20080116
  2. PREDNISOLONE [Concomitant]
     Dates: start: 20080130
  3. LEVOTHYROXINE SODIUM [Concomitant]
     Dosage: 50 YG
  4. CALCIUM [Concomitant]
  5. INFLIXIMAB [Suspect]
     Route: 042
     Dates: start: 20060101
  6. TRAMUNDIN RETARD [Concomitant]
     Dates: end: 20080101
  7. CIMETIDINE [Concomitant]
  8. METHOTREXATE [Concomitant]
     Dates: start: 20050101
  9. INFLIXIMAB [Suspect]
     Indication: RHEUMATOID ARTHRITIS
     Route: 042
     Dates: start: 20060101, end: 20071101
  10. PREDNISOLONE [Concomitant]
     Indication: RHEUMATOID ARTHRITIS
     Dates: start: 19950620
  11. ERGOCALCIFEROL [Concomitant]
     Dosage: 1000
  12. INFLIXIMAB [Suspect]
     Route: 042
     Dates: start: 20050929
  13. METHOTREXATE [Concomitant]
     Dates: start: 20020208
  14. RAMIPRIL [Concomitant]

REACTIONS (4)
  - PSEUDOMONAS INFECTION [None]
  - CAROTID ARTERY STENOSIS [None]
  - PNEUMONIA ASPIRATION [None]
  - HYPOPHARYNGEAL CANCER [None]
